FAERS Safety Report 17162388 (Version 1)
Quarter: 2019Q4

REPORT INFORMATION
  Report Type: Spontaneous
  Country: US (occurrence: US)
  Receive Date: 20191217
  Receipt Date: 20191217
  Transmission Date: 20200122
  Serious: Yes (Other)
  Sender: FDA-Public Use
  Company Number: US-GILEAD-2019-0442855

PATIENT
  Sex: Male

DRUGS (1)
  1. ATRIPLA [Suspect]
     Active Substance: EFAVIRENZ\EMTRICITABINE\TENOFOVIR DISOPROXIL FUMARATE
     Indication: PRODUCT USED FOR UNKNOWN INDICATION
     Dosage: UNK
     Route: 048
     Dates: start: 201204, end: 201808

REACTIONS (7)
  - Anxiety [Unknown]
  - Osteopenia [Unknown]
  - Emotional distress [Unknown]
  - Anhedonia [Unknown]
  - Chronic kidney disease [Unknown]
  - Pain [Unknown]
  - Economic problem [Unknown]

NARRATIVE: CASE EVENT DATE: 2013
